FAERS Safety Report 26181553 (Version 1)
Quarter: 2025Q4

REPORT INFORMATION
  Report Type: Report from Study
  Country: US (occurrence: US)
  Receive Date: 20251221
  Receipt Date: 20251221
  Transmission Date: 20260117
  Serious: No
  Sender: DECIPHERA PHARMACEUTICALS
  Company Number: US-DECIPHERA PHARMACEUTICALS LLC-2025US001482

PATIENT
  Age: 76 Year
  Sex: Female

DRUGS (3)
  1. QINLOCK [Suspect]
     Active Substance: RIPRETINIB
     Indication: Gastrointestinal stromal tumour
     Dosage: 150 MILLIGRAM, QD (50 MG 3 TABLETS ONCE DAILY)
     Route: 061
     Dates: start: 20250110, end: 2025
  2. QINLOCK [Suspect]
     Active Substance: RIPRETINIB
     Dosage: 100 MILLIGRAM, QD (50 MG, 2 TABLETS ONCE DAILY)
     Route: 061
     Dates: start: 2025
  3. QINLOCK [Suspect]
     Active Substance: RIPRETINIB
     Dosage: 150 MILLIGRAM, QD (50 MG 3 TABLETS ONCE DAILY)
     Route: 061
     Dates: start: 2025

REACTIONS (10)
  - Illness [Unknown]
  - Hypersomnia [Unknown]
  - Pain [Unknown]
  - Dehydration [Unknown]
  - Asthenia [Unknown]
  - Headache [Unknown]
  - Diarrhoea [Unknown]
  - Muscle spasms [Unknown]
  - Vomiting [Unknown]
  - Faecal lactoferrin [Unknown]

NARRATIVE: CASE EVENT DATE: 20250101
